FAERS Safety Report 21979025 (Version 1)
Quarter: 2023Q1

REPORT INFORMATION
  Report Type: Other
  Country: DE (occurrence: DE)
  Receive Date: 20230210
  Receipt Date: 20230210
  Transmission Date: 20230418
  Serious: Yes (Death)
  Sender: FDA-Public Use
  Company Number: DE-ROCHE-3257998

PATIENT
  Age: 64 Year
  Sex: Male

DRUGS (7)
  1. RITUXIMAB [Suspect]
     Active Substance: RITUXIMAB
     Indication: Autologous haematopoietic stem cell transplant
     Dosage: 375 MG/M2 (DAY 1)
     Route: 042
  2. THIOTEPA [Suspect]
     Active Substance: THIOTEPA
     Indication: Autologous haematopoietic stem cell transplant
     Route: 065
  3. THIOTEPA [Suspect]
     Active Substance: THIOTEPA
     Route: 065
  4. CYTARABINE [Suspect]
     Active Substance: CYTARABINE
     Indication: Autologous haematopoietic stem cell transplant
     Route: 065
  5. CARMUSTINE [Suspect]
     Active Substance: CARMUSTINE
     Indication: Autologous haematopoietic stem cell transplant
     Dosage: 400 MG/M2 (DAY 2)
     Route: 065
  6. TACROLIMUS [Suspect]
     Active Substance: TACROLIMUS
     Indication: Prophylaxis against transplant rejection
     Route: 065
  7. METHOTREXATE [Suspect]
     Active Substance: METHOTREXATE
     Indication: Prophylaxis against transplant rejection
     Route: 065

REACTIONS (3)
  - Pneumonia [Fatal]
  - Infection [Unknown]
  - Off label use [Unknown]
